FAERS Safety Report 8606698-6 (Version None)
Quarter: 2012Q3

REPORT INFORMATION
  Report Type: 
  Country: None (occurrence: None)
  Receive Date: 20120820
  Receipt Date: 20120814
  Transmission Date: 20120928
  Serious: Yes (Death, Other)
  Sender: FDA-Public Use
  Company Number: US-ROCHE-1019949

PATIENT
  Age: 60 Year
  Sex: Male
  Weight: 104.36 kg

DRUGS (16)
  1. FOLIC ACID [Concomitant]
     Indication: RHEUMATOID ARTHRITIS
     Route: 048
     Dates: start: 19990101
  2. EXTRA STRENGTH TYLENOL [Concomitant]
     Route: 048
     Dates: start: 20050630
  3. VIAGRA [Concomitant]
     Indication: ERECTILE DYSFUNCTION
     Route: 048
     Dates: start: 20110715
  4. METHOTREXATE [Concomitant]
     Indication: RHEUMATOID ARTHRITIS
     Route: 048
     Dates: start: 19990101, end: 20111201
  5. PREDNISONE [Concomitant]
     Indication: RHEUMATOID ARTHRITIS
     Route: 048
     Dates: start: 19990101
  6. EXTRA STRENGTH TYLENOL [Concomitant]
     Indication: RHEUMATOID ARTHRITIS
     Route: 048
     Dates: start: 20080101
  7. ACTEMRA [Suspect]
     Indication: RHEUMATOID ARTHRITIS
     Dosage: MOST RECENT DOSE PRIOR TO SAE: 01/FEB/2012
     Route: 058
     Dates: start: 20120118, end: 20120214
  8. ASPIRIN [Concomitant]
     Indication: CARDIOVASCULAR EVENT PROPHYLAXIS
     Route: 048
     Dates: start: 20050630
  9. MULTI-VITAMIN [Concomitant]
     Route: 048
     Dates: start: 20080101
  10. ACTEMRA [Suspect]
     Indication: RHEUMATOID ARTHRITIS
     Dosage: MOST RECENT DOSE TAKEN ON 26/OCT/2011
     Route: 058
     Dates: start: 20110803, end: 20120214
  11. METHOTREXATE [Concomitant]
     Route: 048
     Dates: start: 20111221
  12. PREDNISONE [Concomitant]
     Route: 048
     Dates: start: 20050621
  13. MULTI-VITAMIN [Concomitant]
     Indication: MEDICAL DIET
     Route: 048
     Dates: start: 20050630
  14. ZESTRIL [Concomitant]
     Indication: HYPERTENSION
     Route: 048
     Dates: start: 19980101
  15. ASPIRIN [Concomitant]
     Route: 048
     Dates: start: 20080101
  16. FOLIC ACID [Concomitant]
     Route: 048
     Dates: start: 20050621

REACTIONS (4)
  - ANGINA PECTORIS [None]
  - DEEP VEIN THROMBOSIS [None]
  - INJECTION SITE HAEMATOMA [None]
  - SINUSITIS [None]
